FAERS Safety Report 24135319 (Version 2)
Quarter: 2024Q3

REPORT INFORMATION
  Report Type: Spontaneous
  Country: IE (occurrence: None)
  Receive Date: 20240725
  Receipt Date: 20240802
  Transmission Date: 20241017
  Serious: Yes (Death, Life-Threatening, Hospitalization, Disabling, Other)
  Sender: ASTRAZENECA
  Company Number: 2024A166191

PATIENT
  Age: 77 Year
  Sex: Male

DRUGS (9)
  1. ONDEXXYA [Suspect]
     Active Substance: ANDEXANET ALFA
     Indication: Procoagulant therapy
     Dosage: 400MG STAT400.0MG UNKNOWN
     Route: 040
     Dates: start: 20240701, end: 20240701
  2. FLUCONAZOLE (GENERIC) [Concomitant]
  3. FENTANYL [Concomitant]
     Active Substance: FENTANYL\FENTANYL CITRATE
  4. PIPERACILLIN SODIUM\TAZOBACTAM SODIUM [Concomitant]
     Active Substance: PIPERACILLIN SODIUM\TAZOBACTAM SODIUM
  5. ROSUVASTATIN [Concomitant]
     Active Substance: ROSUVASTATIN\ROSUVASTATIN CALCIUM
  6. MORPHINE [Concomitant]
     Active Substance: MORPHINE
  7. PANTOPRAZOLE [Concomitant]
     Active Substance: PANTOPRAZOLE
  8. ACETAMINOPHEN [Concomitant]
     Active Substance: ACETAMINOPHEN
  9. PROPOFOL [Concomitant]
     Active Substance: PROPOFOL

REACTIONS (3)
  - Death [Fatal]
  - Parietal lobe stroke [Unknown]
  - Occipital lobe stroke [Unknown]

NARRATIVE: CASE EVENT DATE: 20240701
